FAERS Safety Report 8462722-5 (Version None)
Quarter: 2012Q2

REPORT INFORMATION
  Report Type: 
  Country: None (occurrence: None)
  Receive Date: 20120618
  Receipt Date: 20120618
  Transmission Date: 20120825
  Serious: No
  Sender: FDA-Public Use
  Company Number: None

PATIENT
  Age: 52 Year
  Sex: Female
  Weight: 60.3284 kg

DRUGS (3)
  1. CRESTOR [Suspect]
     Indication: CALCINOSIS
     Dosage: 5 MG ONCE A DAY PO
     Route: 048
     Dates: start: 20120301, end: 20120322
  2. CRESTOR [Suspect]
     Indication: CARDIAC DISORDER
     Dosage: 5 MG ONCE A DAY PO
     Route: 048
     Dates: start: 20120301, end: 20120322
  3. CRESTOR [Suspect]
     Indication: LOW DENSITY LIPOPROTEIN INCREASED
     Dosage: 5 MG ONCE A DAY PO
     Route: 048
     Dates: start: 20120301, end: 20120322

REACTIONS (2)
  - MYALGIA [None]
  - MUSCLE SPASMS [None]
